FAERS Safety Report 9832899 (Version 4)
Quarter: 2014Q2

REPORT INFORMATION
  Report Type: Spontaneous
  Country: US (occurrence: US)
  Receive Date: 20140121
  Receipt Date: 20140429
  Transmission Date: 20141212
  Serious: Yes (Hospitalization)
  Sender: FDA-Public Use
  Company Number: US-UCBSA-108720

PATIENT
  Age: 57 Year
  Sex: Male
  Weight: 56.7 kg

DRUGS (4)
  1. CIMZIA [Suspect]
     Indication: CROHN^S DISEASE
     Dosage: EXPIRATION DATE: NOV-2015
     Route: 058
     Dates: start: 20101220
  2. BC POWDER MEDICATION [Suspect]
     Dosage: 8-10
  3. LORAZEPAM [Concomitant]
     Indication: ANXIETY
     Dosage: 4 TIMES A DAY AS NEEDED
     Route: 048
  4. PAXIL [Concomitant]
     Indication: DEPRESSION
     Dosage: 20MG THREE TABLETS DAILY
     Route: 048

REACTIONS (5)
  - Gastrointestinal ulcer haemorrhage [Recovered/Resolved]
  - Anaemia [Not Recovered/Not Resolved]
  - Fatigue [Recovered/Resolved]
  - Haematochezia [Recovered/Resolved]
  - Loss of consciousness [Recovered/Resolved]
